FAERS Safety Report 15129129 (Version 1)
Quarter: 2018Q3

REPORT INFORMATION
  Report Type: Spontaneous
  Country: US (occurrence: US)
  Receive Date: 20180711
  Receipt Date: 20180711
  Transmission Date: 20181010
  Serious: No
  Sender: FDA-Public Use
  Company Number: US-PFIZER INC-2018277870

PATIENT
  Sex: Female

DRUGS (1)
  1. LYRICA [Suspect]
     Active Substance: PREGABALIN
     Dosage: 75 MG, 2X/DAY

REACTIONS (6)
  - Psychiatric symptom [Unknown]
  - Abnormal behaviour [Unknown]
  - Tremor [Unknown]
  - Somnolence [Unknown]
  - Dizziness [Unknown]
  - Nervousness [Unknown]
